FAERS Safety Report 7132133-3 (Version None)
Quarter: 2010Q4

REPORT INFORMATION
  Report Type: 
  Country: None (occurrence: None)
  Receive Date: 20101202
  Receipt Date: 20101126
  Transmission Date: 20110411
  Serious: Yes (Life-Threatening, Hospitalization)
  Sender: FDA-Public Use
  Company Number: JP-ASTRAZENECA-2010SE17598

PATIENT
  Age: 306 Month
  Sex: Male
  Weight: 98 kg

DRUGS (11)
  1. SEROQUEL [Suspect]
     Indication: SCHIZOPHRENIA
     Route: 048
  2. SEROQUEL [Suspect]
     Indication: BIPOLAR DISORDER
     Route: 048
  3. SEROQUEL [Suspect]
     Dosage: ( 13975 MG)
     Route: 048
  4. SEROQUEL [Suspect]
     Dosage: ( 13975 MG)
     Route: 048
  5. SULPIRIDE [Suspect]
     Route: 048
  6. AMOBAN [Suspect]
     Indication: SCHIZOPHRENIA
     Route: 048
  7. AMOBAN [Suspect]
     Indication: BIPOLAR DISORDER
     Route: 048
  8. DEPAKENE [Suspect]
     Route: 048
  9. HIRNAMIN [Suspect]
     Route: 048
  10. BIBITTOACE [Suspect]
     Route: 048
  11. PARULEON [Suspect]
     Route: 048

REACTIONS (7)
  - ALTERED STATE OF CONSCIOUSNESS [None]
  - DISSEMINATED INTRAVASCULAR COAGULATION [None]
  - HYPERCREATININAEMIA [None]
  - HYPOXIA [None]
  - OVERDOSE [None]
  - PNEUMONIA ASPIRATION [None]
  - QUADRIPLEGIA [None]
